FAERS Safety Report 8777109 (Version 2)
Quarter: 2013Q4

REPORT INFORMATION
  Report Type: Spontaneous
  Country: US (occurrence: US)
  Receive Date: 20120911
  Receipt Date: 20131101
  Transmission Date: 20140711
  Serious: No
  Sender: FDA-Public Use
  Company Number: US-009507513-1209USA003017

PATIENT
  Age: 22 Year
  Sex: Female
  Weight: 74.83 kg

DRUGS (1)
  1. IMPLANON [Suspect]
     Indication: CONTRACEPTION
     Dosage: 3 YEARS
     Route: 059
     Dates: start: 20100928

REACTIONS (7)
  - Panic attack [Unknown]
  - Chest pain [Unknown]
  - Thrombosis [Unknown]
  - Anxiety [Unknown]
  - Metrorrhagia [Unknown]
  - Abdominal pain [Unknown]
  - Hot flush [Unknown]
